FAERS Safety Report 7284755-7 (Version None)
Quarter: 2011Q1

REPORT INFORMATION
  Report Type: 
  Country: None (occurrence: None)
  Receive Date: 20110210
  Receipt Date: 20100212
  Transmission Date: 20110831
  Serious: No
  Sender: FDA-Public Use
  Company Number: 2010BI005351

PATIENT
  Sex: Male

DRUGS (1)
  1. TYSABRI [Suspect]
     Indication: MULTIPLE SCLEROSIS
     Route: 042
     Dates: start: 20070220, end: 20100820

REACTIONS (6)
  - INFECTION [None]
  - WOUND INFECTION STAPHYLOCOCCAL [None]
  - URINARY TRACT INFECTION [None]
  - IMPAIRED HEALING [None]
  - WOUND INFECTION [None]
  - OPEN WOUND [None]
